FAERS Safety Report 8906511 (Version 1)
Quarter: 2012Q4

REPORT INFORMATION
  Report Type: Spontaneous
  Country: US (occurrence: None)
  Receive Date: 20121108
  Receipt Date: 20121108
  Transmission Date: 20130627
  Serious: Yes (Hospitalization)
  Sender: FDA-Public Use
  Company Number: TPA2012A08617

PATIENT
  Age: 63 Year
  Sex: Male

DRUGS (1)
  1. FEBUXOSTAT [Suspect]

REACTIONS (6)
  - Antineutrophil cytoplasmic antibody positive [None]
  - Renal failure acute [None]
  - Nephrotic syndrome [None]
  - Haematuria [None]
  - Leukocyturia [None]
  - Kidney enlargement [None]
